FAERS Safety Report 7870102 (Version 6)
Quarter: 2012Q4

REPORT INFORMATION
  Report Type: 
  Country: US (occurrence: US)
  Receive Date: 20110324
  Receipt Date: 20120927
  Transmission Date: 20130627
  Serious: Yes (Other)
  Sender: FDA-Public Use
  Company Number: US-ASTRAZENECA-2011SE03168

PATIENT
  Age: 45 Year
  Sex: Female

DRUGS (11)
  1. PULMICORT FLEXHALER [Suspect]
     Route: 055
  2. RHINOCORT AQUA [Suspect]
     Route: 045
  3. SYMBICORT PMDI [Suspect]
     Route: 055
  4. NEXIUM [Suspect]
     Route: 048
  5. SEROQUEL [Suspect]
     Indication: BIPOLAR I DISORDER
     Route: 048
  6. SEROQUEL [Suspect]
     Indication: BIPOLAR DISORDER
     Route: 048
  7. ZOMIG [Suspect]
     Route: 048
  8. PEPCID [Concomitant]
  9. ADVAIR [Concomitant]
  10. CODEINE [Concomitant]
  11. MORPHINE [Concomitant]

REACTIONS (24)
  - Ulcer [Unknown]
  - Appendicitis [Unknown]
  - Pneumonia [Unknown]
  - Pulmonary embolism [Unknown]
  - Peripheral embolism [Unknown]
  - Clostridium difficile infection [Unknown]
  - Fibromyalgia [Unknown]
  - Bipolar disorder [Unknown]
  - Chronic obstructive pulmonary disease [Unknown]
  - Malaise [Unknown]
  - Respiratory disorder [Unknown]
  - Weight decreased [Unknown]
  - Aphasia [Unknown]
  - Fear [Unknown]
  - Hallucination, auditory [Unknown]
  - Tremor [Unknown]
  - Oedema peripheral [Unknown]
  - Depression [Unknown]
  - Insomnia [Unknown]
  - Headache [Unknown]
  - Panic attack [Unknown]
  - Memory impairment [Unknown]
  - Intentional drug misuse [Unknown]
  - Drug dose omission [Unknown]
